FAERS Safety Report 6530940-9 (Version None)
Quarter: 2010Q1

REPORT INFORMATION
  Report Type: 
  Country: None (occurrence: None)
  Receive Date: 20100108
  Receipt Date: 20090814
  Transmission Date: 20100710
  Serious: No
  Sender: FDA-Public Use
  Company Number: A0793281A

PATIENT
  Age: 70 Year
  Sex: Female

DRUGS (10)
  1. LOVAZA [Suspect]
     Dosage: 2CAPL TWICE PER DAY
     Route: 048
     Dates: start: 20060101
  2. ATENOLOL [Concomitant]
  3. LIPITOR [Concomitant]
  4. AMLODIPINE [Concomitant]
  5. PREMARIN [Concomitant]
  6. HYDROCHLOROTHIAZIDE [Concomitant]
  7. ASPIRIN [Concomitant]
  8. TRICOR [Concomitant]
  9. DETROL [Concomitant]
  10. M.V.I. [Concomitant]

REACTIONS (4)
  - DYSGEUSIA [None]
  - INSOMNIA [None]
  - PRODUCT ODOUR ABNORMAL [None]
  - PRODUCT QUALITY ISSUE [None]
